FAERS Safety Report 6005535-6 (Version None)
Quarter: 2008Q4

REPORT INFORMATION
  Report Type: 
  Country: None (occurrence: None)
  Receive Date: 20081216
  Receipt Date: 20081216
  Transmission Date: 20090506
  Serious: Yes (Hospitalization)
  Sender: FDA-Public Use
  Company Number: None

PATIENT
  Sex: Female

DRUGS (2)
  1. PEGASYS [Suspect]
     Indication: HEPATITIS C
     Dosage: 180 MCG QW SQ
     Dates: start: 20080801
  2. RIBAVIRIN [Suspect]
     Indication: HEPATITIS C
     Dosage: 200 MG 2/3 QAM + QPM PO
     Route: 048
     Dates: start: 20080801

REACTIONS (3)
  - GUILLAIN-BARRE SYNDROME [None]
  - HYPOAESTHESIA [None]
  - PARAESTHESIA [None]
